FAERS Safety Report 6282572-8 (Version None)
Quarter: 2009Q3

REPORT INFORMATION
  Report Type: 
  Country: None (occurrence: None)
  Receive Date: 20090724
  Receipt Date: 20090715
  Transmission Date: 20100115
  Serious: Yes (Other)
  Sender: FDA-Public Use
  Company Number: US-JNJFOC-20090706498

PATIENT
  Age: 65 Year
  Sex: Male

DRUGS (3)
  1. NUCYNTA [Suspect]
     Indication: PAIN
     Route: 048
  2. METHADONE HCL [Concomitant]
     Route: 065
  3. OXYCONTIN [Concomitant]
     Route: 065

REACTIONS (5)
  - CONFUSIONAL STATE [None]
  - DISORIENTATION [None]
  - DIZZINESS [None]
  - DRUG ADMINISTRATION ERROR [None]
  - HALLUCINATION [None]
